FAERS Safety Report 18408039 (Version 1)
Quarter: 2020Q4

REPORT INFORMATION
  Report Type: Spontaneous
  Country: GB (occurrence: GB)
  Receive Date: 20201021
  Receipt Date: 20201021
  Transmission Date: 20210114
  Serious: Yes (Other)
  Sender: FDA-Public Use
  Company Number: GB-REGENERON PHARMACEUTICALS, INC.-2020-83234

PATIENT

DRUGS (3)
  1. EYLEA [Suspect]
     Active Substance: AFLIBERCEPT
     Indication: NEOVASCULAR AGE-RELATED MACULAR DEGENERATION
     Dosage: 2MG/50 MICROLITRES
     Route: 050
     Dates: start: 20200814, end: 20200814
  2. OXYBUPROCAINE HYDROCHLORIDE [Concomitant]
     Active Substance: BENOXINATE HYDROCHLORIDE
     Indication: LOCAL ANAESTHESIA
     Dosage: 0.5 ML UNIT DOSE
     Route: 061
     Dates: start: 20200814, end: 20200814
  3. MINIMS POVIDONE IODINE [Concomitant]
     Indication: INFECTION PROPHYLAXIS
     Dosage: 0.4 ML UNIT DOSE
     Route: 061
     Dates: start: 20200814, end: 20200814

REACTIONS (7)
  - Iridocyclitis [Recovered/Resolved]
  - Pain [Unknown]
  - Vision blurred [Unknown]
  - Anterior chamber cell [Unknown]
  - Visual impairment [Unknown]
  - Photophobia [Unknown]
  - Conjunctival hyperaemia [Unknown]

NARRATIVE: CASE EVENT DATE: 20200814
